FAERS Safety Report 24362148 (Version 1)
Quarter: 2024Q3

REPORT INFORMATION
  Report Type: Spontaneous
  Country: US (occurrence: None)
  Receive Date: 20240924
  Receipt Date: 20240924
  Transmission Date: 20241017
  Serious: Yes (Disabling)
  Sender: Public
  Company Number: None

PATIENT
  Age: 46 Year
  Sex: Female
  Weight: 120.6 kg

DRUGS (7)
  1. WEGOVY [Suspect]
     Active Substance: SEMAGLUTIDE
     Indication: Obesity
     Dates: start: 20240527
  2. DEXILANT [Concomitant]
  3. WELLBUTRIN [Concomitant]
  4. LIOTHYRONINE [Concomitant]
  5. LINZESS [Concomitant]
     Active Substance: LINACLOTIDE
  6. Vitamn D [Concomitant]
  7. turmeric [Concomitant]

REACTIONS (2)
  - Alopecia areata [None]
  - Condition aggravated [None]

NARRATIVE: CASE EVENT DATE: 20240910
